FAERS Safety Report 6442911-1 (Version None)
Quarter: 2009Q4

REPORT INFORMATION
  Report Type: 
  Country: None (occurrence: None)
  Receive Date: 20091113
  Receipt Date: 20091030
  Transmission Date: 20100525
  Serious: Yes (Death, Hospitalization)
  Sender: FDA-Public Use
  Company Number: WAES 0911USA00194

PATIENT
  Age: 51 Year
  Sex: Male

DRUGS (13)
  1. ISENTRESS [Suspect]
     Indication: HIV INFECTION
     Dosage: 2 DOSES, BID, PO
     Route: 048
     Dates: start: 20090420, end: 20090526
  2. PREZISTA [Suspect]
     Indication: HIV INFECTION
     Dates: start: 20090420, end: 20090526
  3. LORTAB [Concomitant]
  4. NORVASC [Concomitant]
  5. NORVIR [Concomitant]
  6. OPCON-A [Concomitant]
  7. VIREAD [Concomitant]
  8. ATOVAQUONE [Concomitant]
  9. CREATINE [Concomitant]
  10. DESONIDE [Concomitant]
  11. PLASMA PROTEIN FRACTION (HUMAN) [Concomitant]
  12. SODIUM CHLORIDE [Concomitant]
  13. SULFACETAMIDE SODIUM [Concomitant]

REACTIONS (12)
  - ANISOCYTOSIS [None]
  - BACK PAIN [None]
  - DIARRHOEA [None]
  - DYSGEUSIA [None]
  - DYSPNOEA [None]
  - HAEMOLYTIC ANAEMIA [None]
  - HEPATITIS [None]
  - MACROCYTOSIS [None]
  - MICTURITION URGENCY [None]
  - POIKILOCYTOSIS [None]
  - PROTEIN URINE PRESENT [None]
  - URINE COLOUR ABNORMAL [None]
